FAERS Safety Report 23049974 (Version 1)
Quarter: 2023Q4

REPORT INFORMATION
  Report Type: Spontaneous
  Country: US (occurrence: US)
  Receive Date: 20231010
  Receipt Date: 20231010
  Transmission Date: 20240110
  Serious: No
  Sender: FDA-Public Use
  Company Number: US-ABBVIE-5421176

PATIENT
  Sex: Male

DRUGS (3)
  1. OXYTROL [Suspect]
     Active Substance: OXYBUTYNIN
     Indication: Product used for unknown indication
     Route: 062
  2. OXYTROL [Suspect]
     Active Substance: OXYBUTYNIN
     Dosage: TRANSDERMAL SOLUTION
     Route: 062
  3. OXYTROL [Suspect]
     Active Substance: OXYBUTYNIN
     Dosage: TRANSDERMAL GEL
     Route: 062

REACTIONS (2)
  - Blood glucose increased [Unknown]
  - Bladder disorder [Unknown]
